FAERS Safety Report 24866675 (Version 3)
Quarter: 2025Q3

REPORT INFORMATION
  Report Type: Spontaneous
  Country: US (occurrence: US)
  Receive Date: 20250121
  Receipt Date: 20250712
  Transmission Date: 20251021
  Serious: Yes (Other)
  Sender: AUROBINDO
  Company Number: US-AUROBINDO-AUR-APL-2025-002433

PATIENT
  Age: 54 Year
  Sex: Male

DRUGS (10)
  1. PREDNISONE [Suspect]
     Active Substance: PREDNISONE
     Indication: Intestinal anastomosis
     Route: 065
  2. PREDNISONE [Suspect]
     Active Substance: PREDNISONE
     Indication: Crohn^s disease
     Route: 065
  3. PREDNISONE [Suspect]
     Active Substance: PREDNISONE
     Indication: Anal fistula
  4. ADALIMUMAB [Suspect]
     Active Substance: ADALIMUMAB
     Indication: Intestinal anastomosis
     Route: 065
     Dates: start: 2016, end: 2020
  5. ADALIMUMAB [Suspect]
     Active Substance: ADALIMUMAB
     Indication: Crohn^s disease
  6. ADALIMUMAB [Suspect]
     Active Substance: ADALIMUMAB
     Indication: Anal fistula
  7. AZATHIOPRINE [Suspect]
     Active Substance: AZATHIOPRINE
     Indication: Anal fistula
     Route: 065
     Dates: start: 2020, end: 2020
  8. AZATHIOPRINE [Suspect]
     Active Substance: AZATHIOPRINE
     Indication: Crohn^s disease
  9. INFLIXIMAB [Suspect]
     Active Substance: INFLIXIMAB
     Indication: Intestinal anastomosis
     Route: 065
  10. INFLIXIMAB [Suspect]
     Active Substance: INFLIXIMAB
     Indication: Crohn^s disease

REACTIONS (2)
  - Plasmablastic lymphoma [Recovered/Resolved]
  - Epstein-Barr virus associated lymphoma [Recovered/Resolved]

NARRATIVE: CASE EVENT DATE: 20210101
